FAERS Safety Report 24863484 (Version 1)
Quarter: 2025Q1

REPORT INFORMATION
  Report Type: Spontaneous
  Country: US (occurrence: US)
  Receive Date: 20250120
  Receipt Date: 20250120
  Transmission Date: 20250409
  Serious: Yes (Hospitalization, Other)
  Sender: MERCK
  Company Number: US-009507513-2501USA004354

PATIENT
  Age: 72 Year
  Sex: Female

DRUGS (2)
  1. KEYTRUDA [Interacting]
     Active Substance: PEMBROLIZUMAB
     Indication: Squamous cell carcinoma of the oral cavity
  2. CUBICIN [Interacting]
     Active Substance: DAPTOMYCIN
     Indication: Infection

REACTIONS (3)
  - Pulmonary fibrosis [Unknown]
  - Pneumonitis [Unknown]
  - Drug interaction [Unknown]
